FAERS Safety Report 5349043-4 (Version None)
Quarter: 2007Q2

REPORT INFORMATION
  Report Type: 
  Country: None (occurrence: None)
  Receive Date: 20070516
  Receipt Date: 20070330
  Transmission Date: 20071010
  Serious: No
  Sender: FDA-Public Use
  Company Number: 200712322US

PATIENT
  Age: 63 Year
  Sex: Female

DRUGS (12)
  1. APIDRA [Suspect]
     Indication: DIABETES MELLITUS
     Dosage: 15 U TID
  2. OPTICLIK GREY [Suspect]
     Indication: DIABETES MELLITUS
     Dates: start: 20070301
  3. CLONIDINE (CATAPRES) [Concomitant]
  4. MICARDIS [Concomitant]
  5. LISINOPRIL [Concomitant]
  6. XANAX [Concomitant]
  7. ESOMEPRAZOLE MAGNESIUM [Concomitant]
  8. VENLAFAXINE HCL [Concomitant]
  9. TOPAMAX [Concomitant]
  10. ATORVASTATIN CALCIUM (LIPITOR) [Concomitant]
  11. ASPIRIN [Concomitant]
  12. INSULIN GLARGIN (LANTUS) [Concomitant]

REACTIONS (2)
  - BLOOD GLUCOSE DECREASED [None]
  - HEART RATE INCREASED [None]
